FAERS Safety Report 23490380 (Version 8)
Quarter: 2025Q1

REPORT INFORMATION
  Report Type: Report from Study
  Country: DE (occurrence: DE)
  Receive Date: 20240206
  Receipt Date: 20250127
  Transmission Date: 20250408
  Serious: Yes (Hospitalization, Other)
  Sender: TAKEDA
  Company Number: DE-TAKEDA-2024TUS010458

PATIENT
  Age: 89 Year
  Sex: Male

DRUGS (4)
  1. ANTI-INHIBITOR COAGULANT COMPLEX [Suspect]
     Active Substance: ANTI-INHIBITOR COAGULANT COMPLEX
     Indication: Factor VIII deficiency
     Dosage: 2000 INTERNATIONAL UNIT, 1/WEEK
     Dates: start: 20231228
  2. ANTI-INHIBITOR COAGULANT COMPLEX [Suspect]
     Active Substance: ANTI-INHIBITOR COAGULANT COMPLEX
     Dosage: 2000 INTERNATIONAL UNIT, 1/WEEK
  3. ANTI-INHIBITOR COAGULANT COMPLEX [Suspect]
     Active Substance: ANTI-INHIBITOR COAGULANT COMPLEX
  4. ANTI-INHIBITOR COAGULANT COMPLEX [Suspect]
     Active Substance: ANTI-INHIBITOR COAGULANT COMPLEX
     Dosage: 2000 INTERNATIONAL UNIT, 1/WEEK

REACTIONS (3)
  - Haematoma [Recovering/Resolving]
  - Back pain [Unknown]
  - Macular degeneration [Recovered/Resolved]

NARRATIVE: CASE EVENT DATE: 20240715
